FAERS Safety Report 12921814 (Version 2)
Quarter: 2022Q2

REPORT INFORMATION
  Report Type: Spontaneous
  Country: CA (occurrence: CA)
  Receive Date: 20161108
  Receipt Date: 20220617
  Transmission Date: 20220721
  Serious: Yes (Death, Life-Threatening, Hospitalization, Other)
  Sender: FDA-Public Use
  Company Number: CA-SA-2016SA201409

PATIENT
  Age: 68 Year
  Sex: Male

DRUGS (12)
  1. LEFLUNOMIDE [Interacting]
     Active Substance: LEFLUNOMIDE
     Indication: Rheumatoid arthritis
     Dosage: 20 MG,UNK
     Route: 048
  2. LEFLUNOMIDE [Interacting]
     Active Substance: LEFLUNOMIDE
     Dosage: 100 MG
     Route: 048
  3. AMOXICILLIN [Interacting]
     Active Substance: AMOXICILLIN
     Indication: Sinusitis
     Dosage: 500 MG,UNK
     Route: 048
  4. METHOTREXATE [Concomitant]
     Active Substance: METHOTREXATE
     Dosage: 10 MG, QW
     Route: 048
  5. METHOTREXATE [Concomitant]
     Active Substance: METHOTREXATE
     Dosage: 20 MG
     Route: 048
  6. SODIUM BICARBONATE [Concomitant]
     Active Substance: SODIUM BICARBONATE
  7. FILGRASTIM [Concomitant]
     Active Substance: FILGRASTIM
  8. CHOLESTYRAMINE [Concomitant]
     Active Substance: CHOLESTYRAMINE
     Dosage: UNK UNK,UNK
     Route: 065
  9. MEROPENEM [Concomitant]
     Active Substance: MEROPENEM
     Indication: Neutropenia
     Dosage: UNK UNK,UNK
     Route: 065
  10. MEROPENEM [Concomitant]
     Active Substance: MEROPENEM
  11. LEUCOVORIN DABUR [Concomitant]
     Dosage: 150 MG, Q6H
     Route: 042
  12. PIPERACILLIN SODIUM\TAZOBACTAM SODIUM [Concomitant]
     Active Substance: PIPERACILLIN SODIUM\TAZOBACTAM SODIUM
     Dosage: UNK UNK,UNK
     Route: 065

REACTIONS (9)
  - Death [Fatal]
  - Sinusitis [Fatal]
  - Odynophagia [Fatal]
  - Blood creatinine increased [Fatal]
  - Dialysis [Fatal]
  - Neutropenia [Fatal]
  - Pancytopenia [Fatal]
  - Drug interaction [Fatal]
  - Toxicity to various agents [Fatal]

NARRATIVE: CASE EVENT DATE: 20150101
